FAERS Safety Report 14826260 (Version 1)
Quarter: 2018Q2

REPORT INFORMATION
  Report Type: Spontaneous
  Country: US (occurrence: US)
  Receive Date: 20180403
  Receipt Date: 20180403
  Transmission Date: 20180711
  Serious: Yes (Other)
  Sender: FDA-Public Use
  Company Number: None

PATIENT
  Age: 57 Year
  Sex: Female

DRUGS (2)
  1. LIDOCAINE. [Suspect]
     Active Substance: LIDOCAINE
     Indication: SYNOVITIS
     Route: 014
     Dates: start: 20180322, end: 20180322
  2. BUPIVACAINE. [Suspect]
     Active Substance: BUPIVACAINE
     Indication: MUSCULOSKELETAL PAIN
     Route: 014
     Dates: start: 20180322, end: 20180322

REACTIONS (2)
  - Dizziness [None]
  - Feeling abnormal [None]

NARRATIVE: CASE EVENT DATE: 20180322
